FAERS Safety Report 7083465-9 (Version None)
Quarter: 2010Q4

REPORT INFORMATION
  Report Type: 
  Country: None (occurrence: None)
  Receive Date: 20101104
  Receipt Date: 20101028
  Transmission Date: 20110411
  Serious: Yes (Other)
  Sender: FDA-Public Use
  Company Number: B0682089A

PATIENT
  Sex: Female

DRUGS (2)
  1. LAMICTAL [Suspect]
     Indication: BIPOLAR DISORDER
     Dosage: 50MG PER DAY
     Route: 048
     Dates: start: 20100928
  2. DEPAKENE [Concomitant]
     Indication: BIPOLAR DISORDER
     Route: 048
     Dates: start: 20100928

REACTIONS (2)
  - ANXIETY [None]
  - HALLUCINATION [None]
